FAERS Safety Report 4305357-8 (Version None)
Quarter: 2004Q1

REPORT INFORMATION
  Report Type: 
  Country: None (occurrence: None)
  Receive Date: 20040226
  Receipt Date: 20030729
  Transmission Date: 20041129
  Serious: No
  Sender: FDA-Public Use
  Company Number: US-BRISTOL-MYERS SQUIBB COMPANY-12341541

PATIENT
  Age: 44 Year
  Sex: Male
  Weight: 73 kg

DRUGS (6)
  1. TAXOL [Suspect]
     Indication: NON-SMALL CELL LUNG CANCER
     Dosage: THREE/WEEK
     Route: 042
     Dates: start: 20030701, end: 20030812
  2. DECADRON [Concomitant]
     Route: 042
  3. KYTRIL [Concomitant]
     Route: 042
  4. BENADRYL [Concomitant]
     Route: 042
  5. TAGAMET [Concomitant]
     Route: 042
  6. RADIATION THERAPY [Concomitant]

REACTIONS (3)
  - COUGH [None]
  - FEELING HOT [None]
  - FLUSHING [None]
